FAERS Safety Report 16917391 (Version 1)
Quarter: 2019Q4

REPORT INFORMATION
  Report Type: Spontaneous
  Country: US (occurrence: US)
  Receive Date: 20191015
  Receipt Date: 20191015
  Transmission Date: 20200122
  Serious: Yes (Hospitalization)
  Sender: FDA-Public Use
  Company Number: US-SA-2019SA282195

PATIENT
  Age: 75 Year
  Sex: Female

DRUGS (1)
  1. AUBAGIO [Suspect]
     Active Substance: TERIFLUNOMIDE
     Dosage: 14 MG, QD
     Route: 048
     Dates: start: 201904

REACTIONS (2)
  - Diarrhoea [Unknown]
  - Haemoglobin decreased [Unknown]

NARRATIVE: CASE EVENT DATE: 20191008
